FAERS Safety Report 9668072 (Version 1)
Quarter: 2013Q4

REPORT INFORMATION
  Report Type: Spontaneous
  Country: US (occurrence: None)
  Receive Date: 20131101
  Receipt Date: 20131101
  Transmission Date: 20140711
  Serious: Yes (Death, Hospitalization)
  Sender: FDA-Public Use
  Company Number: 1310-1386

PATIENT
  Age: 86 Year
  Sex: Male
  Weight: 48.99 kg

DRUGS (1)
  1. VEGF TRAP-EYE (INJECTION)(VEGF TRAP) [Suspect]
     Indication: POLYPOIDAL CHOROIDAL VASCULOPATHY
     Dosage: INTRAVITREAL
     Dates: start: 20130430

REACTIONS (7)
  - Cardiogenic shock [None]
  - Cardiac failure congestive [None]
  - Myocardial infarction [None]
  - Asthenia [None]
  - Renal failure [None]
  - Hyperkalaemia [None]
  - Hypotension [None]
